FAERS Safety Report 7836381 (Version 2)
Quarter: 2012Q4

REPORT INFORMATION
  Report Type: Report from Study
  Country: DE (occurrence: DE)
  Receive Date: 20110302
  Receipt Date: 20120911
  Transmission Date: 20130627
  Serious: Yes (Hospitalization)
  Sender: FDA-Public Use
  Company Number: DE-JNJFOC-20100808371

PATIENT
  Sex: Female
  Weight: 76 kg

DRUGS (9)
  1. REMICADE [Suspect]
     Indication: COLITIS ULCERATIVE
     Route: 042
     Dates: start: 20090630, end: 20091203
  2. TRAMODOL [Concomitant]
     Indication: PROCEDURAL PAIN
     Dosage: 20 drops
     Route: 048
     Dates: start: 20100518, end: 20100531
  3. NOVAMINSULFON [Concomitant]
     Indication: PROCEDURAL PAIN
     Dosage: 40 drops
     Route: 048
     Dates: start: 20100518, end: 20100531
  4. VOLTAREN [Concomitant]
     Indication: BACK PAIN
     Route: 048
     Dates: start: 20100530
  5. PANTOZOL [Concomitant]
     Indication: PROPHYLAXIS
     Route: 048
     Dates: start: 20100514
  6. UNKNOWN MEDICATION [Concomitant]
     Indication: DIARRHOEA
     Route: 048
     Dates: start: 20100519, end: 20100811
  7. UNKNOWN MEDICATION [Concomitant]
     Indication: DIARRHOEA
     Route: 048
     Dates: start: 20100519, end: 20100811
  8. UNKNOWN MEDICATION [Concomitant]
     Indication: DIARRHOEA
     Route: 048
     Dates: start: 20100519
  9. SAROTENA [Concomitant]
     Indication: DEPRESSION
     Route: 048
     Dates: start: 20100519, end: 20100531

REACTIONS (2)
  - Colitis ulcerative [Unknown]
  - Colitis ulcerative [Recovering/Resolving]
